FAERS Safety Report 8928662 (Version 1)
Quarter: 2012Q4

REPORT INFORMATION
  Report Type: 
  Country: ES (occurrence: ES)
  Receive Date: 20121128
  Receipt Date: 20121128
  Transmission Date: 20130627
  Serious: Yes (Death)
  Sender: FDA-Public Use
  Company Number: ES-ASTELLAS-2012EU010380

PATIENT
  Age: 60 Year
  Sex: Male

DRUGS (13)
  1. MYCAMINE [Suspect]
     Indication: SYSTEMIC CANDIDA
     Dosage: 100 mg, Unknown/D
     Route: 042
     Dates: start: 20110801, end: 20110811
  2. ALBUMIN [Concomitant]
     Dosage: UNK
     Route: 065
  3. CALCIUM GLUCONATE [Concomitant]
     Dosage: UNK
     Route: 065
  4. CLOXACILLIN [Concomitant]
     Dosage: UNK
     Route: 065
  5. DOPAMIN                            /00000101/ [Concomitant]
     Dosage: UNK
     Route: 065
  6. FUROSEMIDE [Concomitant]
     Dosage: UNK
     Route: 065
  7. HYDROCORTISONE [Concomitant]
     Dosage: UNK
     Route: 065
  8. IMIPENEM [Concomitant]
     Dosage: UNK
     Route: 065
  9. INSULIN [Concomitant]
     Dosage: UNK
     Route: 065
  10. MAGNESIUM SULPHATE                 /01097001/ [Concomitant]
     Dosage: UNK
     Route: 065
  11. MORPHINE [Concomitant]
     Dosage: UNK
     Route: 065
  12. NORADRENALIN                       /00127501/ [Concomitant]
     Dosage: UNK
     Route: 065
  13. TERLIPRESSIN [Concomitant]
     Dosage: UNK
     Route: 065

REACTIONS (1)
  - Haemodynamic instability [Fatal]
